FAERS Safety Report 14246668 (Version 3)
Quarter: 2018Q3

REPORT INFORMATION
  Report Type: Spontaneous
  Country: US (occurrence: US)
  Receive Date: 20171204
  Receipt Date: 20180717
  Transmission Date: 20181010
  Serious: No
  Sender: FDA-Public Use
  Company Number: US-PFIZER INC-2017500986

PATIENT
  Age: 55 Year
  Sex: Female
  Weight: 58 kg

DRUGS (3)
  1. PREMARIN [Suspect]
     Active Substance: ESTROGENS, CONJUGATED
     Indication: ATROPHIC VULVOVAGINITIS
     Dosage: 0.5 INSERTED VAGINALLY INITIALLY DAILY THEN THE DOSE WAS TITRATED DOWN
     Route: 067
     Dates: end: 201710
  2. PREMARIN [Suspect]
     Active Substance: ESTROGENS, CONJUGATED
     Indication: VULVOVAGINAL DRYNESS
     Dosage: UNK(1 A DAY OF 2 WK; 2 X 3 WK)
     Dates: start: 201704
  3. PREMARIN [Suspect]
     Active Substance: ESTROGENS, CONJUGATED
     Dosage: UNK(1 A DAY OF 2 WK; 2 X 3 WK)
     Dates: start: 201707

REACTIONS (3)
  - Product leakage [Unknown]
  - Drug ineffective [Unknown]
  - Intentional product misuse [Unknown]
